FAERS Safety Report 9366470 (Version 1)
Quarter: 2013Q2

REPORT INFORMATION
  Report Type: Spontaneous
  Country: US (occurrence: US)
  Receive Date: 20130625
  Receipt Date: 20130625
  Transmission Date: 20140414
  Serious: Yes (Other)
  Sender: FDA-Public Use
  Company Number: US-ABBOTT-13P-163-1107703-00

PATIENT
  Sex: Male
  Weight: 75.36 kg

DRUGS (5)
  1. SYNTHROID [Suspect]
     Indication: HYPOTHYROIDISM
     Dates: start: 201305
  2. SYNTHROID [Suspect]
     Indication: HYPOTHYROIDISM
     Dates: start: 2010, end: 201305
  3. PLAVIX [Concomitant]
     Indication: CORONARY ARTERY DISEASE
  4. PRADAXA [Concomitant]
     Indication: ATRIAL FIBRILLATION
  5. CRESTOR [Concomitant]
     Indication: BLOOD CHOLESTEROL INCREASED

REACTIONS (4)
  - Prostate cancer [Recovered/Resolved]
  - Feeling abnormal [Not Recovered/Not Resolved]
  - Nervousness [Not Recovered/Not Resolved]
  - Fatigue [Not Recovered/Not Resolved]
